FAERS Safety Report 21286425 (Version 1)
Quarter: 2022Q3

REPORT INFORMATION
  Report Type: Spontaneous
  Country: GB (occurrence: GB)
  Receive Date: 20220902
  Receipt Date: 20220902
  Transmission Date: 20221026
  Serious: Yes (Hospitalization, Other)
  Sender: FDA-Public Use
  Company Number: GB-MHRA-MED-202208261706141070-KNTFD

PATIENT
  Sex: Male

DRUGS (1)
  1. PAMIDRONATE DISODIUM [Suspect]
     Active Substance: PAMIDRONATE DISODIUM
     Dosage: 30 MG, 1X/DAY FOR 3 DAYS
     Route: 042

REACTIONS (3)
  - Cellulitis [Recovering/Resolving]
  - Extravasation [Recovering/Resolving]
  - Joint swelling [Unknown]
